FAERS Safety Report 24163297 (Version 1)
Quarter: 2024Q3

REPORT INFORMATION
  Report Type: Spontaneous
  Country: GB (occurrence: GB)
  Receive Date: 20240801
  Receipt Date: 20240801
  Transmission Date: 20241016
  Serious: Yes (Other)
  Sender: REGENERON
  Company Number: GB-BAYER-2024A109814

PATIENT
  Age: 61 Year
  Sex: Female

DRUGS (1)
  1. EYLEA HD [Suspect]
     Active Substance: AFLIBERCEPT
     Indication: Product used for unknown indication
     Dosage: BOTH EYES, SOLUTION FOR INJECTION, 114.3 MG/ML
     Dates: start: 20240729, end: 20240729

REACTIONS (2)
  - Intra-ocular injection complication [Unknown]
  - Visual impairment [Unknown]

NARRATIVE: CASE EVENT DATE: 20240729
